FAERS Safety Report 10729568 (Version 1)
Quarter: 2015Q1

REPORT INFORMATION
  Report Type: Spontaneous
  Country: IR (occurrence: IR)
  Receive Date: 20150122
  Receipt Date: 20150122
  Transmission Date: 20150721
  Serious: Yes (Death)
  Sender: FDA-Public Use
  Company Number: IR-CTI_01668_2015

PATIENT
  Age: 2 Day
  Sex: Male

DRUGS (3)
  1. AMPICILLIN [Concomitant]
     Active Substance: AMPICILLIN
     Dosage: DF
  2. CUROSURF [Suspect]
     Active Substance: PORACTANT ALFA
     Indication: NEONATAL RESPIRATORY DISTRESS SYNDROME
     Dosage: 2.5 CC/KG BODY WEIGHT, DAILY; 2 SEPERATED DOSES?DF
     Route: 007
  3. AMIKACIN [Concomitant]
     Active Substance: AMIKACIN
     Dosage: DF

REACTIONS (2)
  - Cardiac arrest neonatal [Fatal]
  - Pulmonary haemorrhage [Fatal]
